FAERS Safety Report 7788712-3 (Version None)
Quarter: 2011Q3

REPORT INFORMATION
  Report Type: 
  Country: None (occurrence: None)
  Receive Date: 20110930
  Receipt Date: 20110923
  Transmission Date: 20111222
  Serious: Yes (Hospitalization)
  Sender: FDA-Public Use
  Company Number: ES-SANOFI-AVENTIS-2011SA062357

PATIENT
  Age: 65 Year
  Sex: Male

DRUGS (3)
  1. CABAZITAXEL [Suspect]
     Indication: PROSTATE CANCER METASTATIC
     Route: 042
     Dates: start: 20110803, end: 20110803
  2. PREDNISONE [Suspect]
     Indication: PROSTATE CANCER METASTATIC
     Route: 048
  3. CABAZITAXEL [Suspect]
     Route: 042
     Dates: start: 20110914, end: 20110914

REACTIONS (1)
  - SYNCOPE [None]
